FAERS Safety Report 8607554 (Version 3)
Quarter: 2013Q2

REPORT INFORMATION
  Report Type: Report from Study
  Country: MX (occurrence: MX)
  Receive Date: 20120611
  Receipt Date: 20130520
  Transmission Date: 20140414
  Serious: Yes (Death)
  Sender: FDA-Public Use
  Company Number: PHHY2012MX049078

PATIENT
  Age: 72 Year
  Sex: Female

DRUGS (4)
  1. GLIVEC [Suspect]
     Indication: CHRONIC MYELOID LEUKAEMIA
     Dosage: 600 MG
     Route: 048
     Dates: start: 201008
  2. GLIVEC [Suspect]
     Indication: NON-HODGKIN^S LYMPHOMA
  3. METOCLOPRAMIDE [Concomitant]
     Dosage: 3(10 MG )
  4. OMEPRAZOLE [Concomitant]
     Dosage: 20 MG, UNK

REACTIONS (5)
  - Blast cell count increased [Fatal]
  - Eastern Cooperative Oncology Group performance status worsened [Fatal]
  - Leukaemia cutis [Fatal]
  - Leukaemic infiltration brain [Fatal]
  - No therapeutic response [Unknown]
